FAERS Safety Report 17093248 (Version 1)
Quarter: 2019Q4

REPORT INFORMATION
  Report Type: Spontaneous
  Country: DE (occurrence: DE)
  Receive Date: 20191129
  Receipt Date: 20191129
  Transmission Date: 20200122
  Serious: Yes (Other)
  Sender: FDA-Public Use
  Company Number: DE-TEVA-2019-DE-1143155

PATIENT
  Age: 42 Year
  Sex: Female
  Weight: 73 kg

DRUGS (6)
  1. OLANZAPIN 2,5 MG [Suspect]
     Active Substance: OLANZAPINE
     Indication: NERVOUS SYSTEM DISORDER
     Dosage: TAKING FOR 11 DAYS; 0.5 DF IN THE EVENING
     Route: 048
     Dates: start: 2019
  2. L-THYROXIN 112 [Concomitant]
  3. OLANZAPIN 2,5 MG [Suspect]
     Active Substance: OLANZAPINE
     Indication: SENSORY LEVEL
  4. CETIRIZIN [Concomitant]
     Active Substance: CETIRIZINE HYDROCHLORIDE
  5. LORANO [Concomitant]
  6. OLANZAPIN 2,5 MG [Suspect]
     Active Substance: OLANZAPINE
     Indication: FATIGUE

REACTIONS (15)
  - Food allergy [Not Recovered/Not Resolved]
  - Fatigue [Not Recovered/Not Resolved]
  - Headache [Not Recovered/Not Resolved]
  - Throat tightness [Not Recovered/Not Resolved]
  - Restlessness [Not Recovered/Not Resolved]
  - Dizziness [Not Recovered/Not Resolved]
  - Asthma [Not Recovered/Not Resolved]
  - Feeling abnormal [Not Recovered/Not Resolved]
  - Impaired driving ability [Not Recovered/Not Resolved]
  - Ovulation pain [Not Recovered/Not Resolved]
  - Swelling face [Not Recovered/Not Resolved]
  - Cough [Not Recovered/Not Resolved]
  - Tunnel vision [Not Recovered/Not Resolved]
  - Hypersomnia [Not Recovered/Not Resolved]
  - Adverse reaction [Not Recovered/Not Resolved]

NARRATIVE: CASE EVENT DATE: 2019
